FAERS Safety Report 6047825-7 (Version None)
Quarter: 2009Q1

REPORT INFORMATION
  Report Type: 
  Country: None (occurrence: None)
  Receive Date: 20090123
  Receipt Date: 20090113
  Transmission Date: 20090719
  Serious: Yes (Disabling, Other)
  Sender: FDA-Public Use
  Company Number: US-PFIZER INC-2008150384

PATIENT
  Sex: Male

DRUGS (1)
  1. LIPITOR [Suspect]

REACTIONS (15)
  - ASTHENIA [None]
  - COGNITIVE DISORDER [None]
  - CONVULSION [None]
  - DISABILITY [None]
  - FATIGUE [None]
  - MALAISE [None]
  - MEMORY IMPAIRMENT [None]
  - MULTI-ORGAN DISORDER [None]
  - MUSCLE INJURY [None]
  - MYALGIA [None]
  - NERVOUS SYSTEM DISORDER [None]
  - NEURALGIA [None]
  - NEUROPATHY PERIPHERAL [None]
  - PAIN [None]
  - SENSORY DISTURBANCE [None]
